FAERS Safety Report 7578839-3 (Version None)
Quarter: 2011Q2

REPORT INFORMATION
  Report Type: 
  Country: None (occurrence: None)
  Receive Date: 20110628
  Receipt Date: 20110618
  Transmission Date: 20111010
  Serious: Yes (Hospitalization)
  Sender: FDA-Public Use
  Company Number: CH-UCBSA-034390

PATIENT
  Sex: Male
  Weight: 86 kg

DRUGS (15)
  1. MADOPAR DR [Concomitant]
     Dates: start: 20101101
  2. NIMOTOP [Concomitant]
     Indication: PERIPHERAL VASCULAR DISORDER
  3. LORAZEPAM [Concomitant]
     Indication: ANXIETY
     Dosage: 1 MG, IF REQUIRED
  4. MADOPAR DR [Concomitant]
     Dates: start: 20090425, end: 20101001
  5. NEUPRO [Suspect]
     Dates: start: 20100428, end: 20100803
  6. MADOPAR LIQUID [Concomitant]
     Indication: PARKINSON'S DISEASE
     Dates: start: 20050905
  7. TASMAR [Concomitant]
     Indication: PARKINSON'S DISEASE
     Dates: start: 20110228
  8. NEUPRO [Suspect]
     Dates: start: 20100804
  9. METO ZEROC [Concomitant]
     Indication: HYPERTENSION
  10. NEUPRO [Suspect]
     Indication: PARKINSON'S DISEASE
     Dates: start: 20100420, end: 20100427
  11. CETRIN [Concomitant]
     Indication: HYPERSENSITIVITY
  12. MADOPAR DR [Concomitant]
     Indication: PARKINSON'S DISEASE
     Dates: start: 20050929, end: 20051006
  13. MADOPAR DR [Concomitant]
     Dates: start: 20051015, end: 20090424
  14. CLAROPRAM [Concomitant]
     Indication: DEPRESSION
  15. MADOPAR DR [Concomitant]
     Dosage: 250 MG, 2 1/2 TBL
     Dates: start: 20051007, end: 20051014

REACTIONS (1)
  - DIARRHOEA [None]
